FAERS Safety Report 16878903 (Version 1)
Quarter: 2019Q4

REPORT INFORMATION
  Report Type: Spontaneous
  Country: CA (occurrence: CA)
  Receive Date: 20191002
  Receipt Date: 20191002
  Transmission Date: 20200122
  Serious: Yes (Death)
  Sender: FDA-Public Use
  Company Number: CA-HLSUS-2019-CA-001173

PATIENT
  Age: 57 Year
  Sex: Male
  Weight: 97 kg

DRUGS (4)
  1. OLMESARTAN MEDOXOMIL. [Concomitant]
     Active Substance: OLMESARTAN MEDOXOMIL
  2. CLOZAPINE. [Suspect]
     Active Substance: CLOZAPINE
     Indication: SCHIZOPHRENIA
     Dosage: 300 MG ONCE DAILY
     Route: 048
  3. SIMVASTATIN. [Concomitant]
     Active Substance: SIMVASTATIN
  4. LORAZEPAM. [Concomitant]
     Active Substance: LORAZEPAM

REACTIONS (12)
  - Acute kidney injury [Fatal]
  - Small intestinal obstruction [Fatal]
  - Urinary tract infection [Fatal]
  - General physical health deterioration [Fatal]
  - Hypotension [Fatal]
  - Intestinal ischaemia [Fatal]
  - Dizziness [Fatal]
  - Small intestinal resection [Fatal]
  - Hyperhidrosis [Fatal]
  - Pneumoperitoneum [Fatal]
  - Septic shock [Fatal]
  - Small intestinal perforation [Fatal]
